FAERS Safety Report 25744412 (Version 2)
Quarter: 2025Q4

REPORT INFORMATION
  Report Type: Spontaneous
  Country: EU (occurrence: EU)
  Receive Date: 20250901
  Receipt Date: 20251015
  Transmission Date: 20260117
  Serious: Yes (Hospitalization)
  Sender: CHIESI
  Company Number: EU-CHIESI-2025CHF06038

PATIENT
  Age: 15 Year
  Sex: Female
  Weight: 52 kg

DRUGS (2)
  1. ELFABRIO [Suspect]
     Active Substance: PEGUNIGALSIDASE ALFA-IWXJ
     Indication: Fabry^s disease
     Dosage: 50 MILLIGRAM
     Route: 042
     Dates: start: 202502
  2. Novamin [Concomitant]
     Indication: Product used for unknown indication
     Dosage: UNK

REACTIONS (4)
  - Leukopenia [Recovered/Resolved]
  - Viral infection [Recovered/Resolved]
  - Pain [Recovered/Resolved]
  - Off label use [Not Recovered/Not Resolved]

NARRATIVE: CASE EVENT DATE: 20250201
